FAERS Safety Report 8358074-1 (Version None)
Quarter: 2012Q2

REPORT INFORMATION
  Report Type: 
  Country: None (occurrence: None)
  Receive Date: 20120514
  Receipt Date: 20120508
  Transmission Date: 20120825
  Serious: Yes (Death)
  Sender: FDA-Public Use
  Company Number: US-CELGENEUS-163-21880-12041464

PATIENT
  Sex: Female

DRUGS (4)
  1. BORTEZOMIB [Concomitant]
     Indication: B-CELL LYMPHOMA
     Route: 065
     Dates: start: 20120404
  2. RITUXAN [Concomitant]
     Indication: B-CELL LYMPHOMA
     Route: 065
     Dates: start: 20120404
  3. REVLIMID [Suspect]
     Indication: B-CELL LYMPHOMA
     Dosage: 25 MILLIGRAM
     Route: 048
     Dates: start: 20120404, end: 20120406
  4. DEXAMETHASONE [Concomitant]
     Indication: B-CELL LYMPHOMA
     Route: 065
     Dates: start: 20120404

REACTIONS (2)
  - B-CELL LYMPHOMA [None]
  - DISEASE PROGRESSION [None]
